FAERS Safety Report 4993974-1 (Version None)
Quarter: 2006Q2

REPORT INFORMATION
  Report Type: 
  Country: None (occurrence: None)
  Receive Date: 20060503
  Receipt Date: 20060418
  Transmission Date: 20061013
  Serious: Yes (Hospitalization)
  Sender: FDA-Public Use
  Company Number: FR200604002916

PATIENT
  Age: 81 Year
  Sex: Female

DRUGS (2)
  1. FORTEO [Suspect]
     Indication: OSTEOPOROSIS
     Dosage: 20 UG, DAILY (1/D) SUBCUTANEOUS
     Route: 058
     Dates: start: 20050401, end: 20060301
  2. FORTEO PEN (FORTEO PEN) [Concomitant]

REACTIONS (1)
  - TACHYCARDIA [None]
